FAERS Safety Report 19392028 (Version 2)
Quarter: 2021Q3

REPORT INFORMATION
  Report Type: Report from Study
  Country: US (occurrence: US)
  Receive Date: 20210608
  Receipt Date: 20210816
  Transmission Date: 20211014
  Serious: No
  Sender: FDA-Public Use
  Company Number: NVSC2021US129331

PATIENT
  Sex: Female

DRUGS (1)
  1. ENTRESTO [Suspect]
     Active Substance: SACUBITRIL\VALSARTAN
     Indication: PRODUCT USED FOR UNKNOWN INDICATION
     Dosage: 0.5 DF, QD (50 MG (24/26 MG), 1/2 TAB)
     Route: 048
     Dates: start: 20210605

REACTIONS (3)
  - Inappropriate schedule of product administration [Unknown]
  - Prescribed underdose [Unknown]
  - Wrong technique in product usage process [Unknown]
